FAERS Safety Report 4745581-3 (Version None)
Quarter: 2005Q3

REPORT INFORMATION
  Report Type: 
  Country: None (occurrence: None)
  Receive Date: 20050812
  Receipt Date: 20050803
  Transmission Date: 20060218
  Serious: Yes (Other)
  Sender: FDA-Public Use
  Company Number: 200513156BCC

PATIENT
  Age: 5 Year
  Sex: Female
  Weight: 15.4223 kg

DRUGS (2)
  1. RID SHAMPOO + CONDITIONER [Suspect]
     Indication: LICE INFESTATION
     Dosage: TOPICAL
     Route: 061
     Dates: start: 20050725
  2. GENERIC LICE TREATMENT [Concomitant]

REACTIONS (4)
  - ABDOMINAL RIGIDITY [None]
  - MUSCLE TWITCHING [None]
  - MUSCULOSKELETAL STIFFNESS [None]
  - PYREXIA [None]
